FAERS Safety Report 5152170-8 (Version None)
Quarter: 2006Q4

REPORT INFORMATION
  Report Type: 
  Country: None (occurrence: None)
  Receive Date: 20061116
  Receipt Date: 20061010
  Transmission Date: 20070319
  Serious: Yes (Disabling)
  Sender: FDA-Public Use
  Company Number: JP-GLAXOSMITHKLINE-B0441770A

PATIENT
  Age: 43 Year
  Sex: Male

DRUGS (5)
  1. PAXIL [Suspect]
     Indication: DEPRESSION
     Route: 048
  2. SULPIRIDE [Suspect]
     Indication: DEPRESSION
     Dosage: 50MG THREE TIMES PER DAY
     Route: 048
     Dates: start: 20060327, end: 20061007
  3. LUVOX [Suspect]
     Indication: DEPRESSION
     Route: 048
     Dates: start: 20060919, end: 20061003
  4. NOCBIN [Concomitant]
     Indication: ALCOHOLISM
     Dosage: .25G PER DAY
     Route: 048
     Dates: start: 20060820
  5. MIYA BM [Concomitant]
     Indication: ALCOHOLISM
     Dosage: .4G PER DAY
     Route: 048
     Dates: start: 20060820

REACTIONS (8)
  - DIZZINESS [None]
  - DYSAESTHESIA [None]
  - FEELING ABNORMAL [None]
  - MOOD ALTERED [None]
  - MYOCLONUS [None]
  - NECK PAIN [None]
  - TREMOR [None]
  - TRISMUS [None]
